FAERS Safety Report 10818030 (Version 1)
Quarter: 2015Q1

REPORT INFORMATION
  Report Type: Report from Study
  Country: US (occurrence: None)
  Receive Date: 20150213
  Receipt Date: 20150213
  Transmission Date: 20150721
  Serious: Yes (Other)
  Sender: FDA-Public Use
  Company Number: 2015BI013766

PATIENT
  Age: 59 Year
  Sex: Male

DRUGS (1)
  1. AVONEX [Suspect]
     Active Substance: INTERFERON BETA-1A
     Indication: MULTIPLE SCLEROSIS
     Route: 030
     Dates: start: 20010826

REACTIONS (5)
  - Chills [None]
  - Hypoaesthesia [None]
  - Pituitary tumour [None]
  - Toothache [None]
  - Influenza like illness [None]

NARRATIVE: CASE EVENT DATE: 2014
